FAERS Safety Report 13562481 (Version 5)
Quarter: 2017Q3

REPORT INFORMATION
  Report Type: Spontaneous
  Country: IT (occurrence: IT)
  Receive Date: 20170519
  Receipt Date: 20170726
  Transmission Date: 20171127
  Serious: Yes (Other)
  Sender: FDA-Public Use
  Company Number: IT-ROCHE-1936139

PATIENT
  Age: 73 Year
  Sex: Female
  Weight: 67 kg

DRUGS (1)
  1. HERCEPTIN [Suspect]
     Active Substance: TRASTUZUMAB
     Indication: BREAST CANCER
     Dosage: DATE OF RECENT DOSE: 22/MAR/2017
     Route: 058
     Dates: start: 20170118

REACTIONS (2)
  - Thrombocytopenia [Unknown]
  - Dysphagia [Recovering/Resolving]

NARRATIVE: CASE EVENT DATE: 20170120
